FAERS Safety Report 10161736 (Version 1)
Quarter: 2014Q2

REPORT INFORMATION
  Report Type: Spontaneous
  Country: FR (occurrence: FR)
  Receive Date: 20140509
  Receipt Date: 20140509
  Transmission Date: 20141212
  Serious: Yes (Hospitalization, Other)
  Sender: FDA-Public Use
  Company Number: FR-ACCORD-023557

PATIENT
  Age: 55 Year
  Sex: Male
  Weight: 91 kg

DRUGS (2)
  1. FLUOROURACIL [Suspect]
     Indication: PRODUCT USED FOR UNKNOWN INDICATION
     Route: 040
     Dates: start: 20140211, end: 20140325
  2. OXALIPLATIN ACCORD [Suspect]
     Indication: COLON CANCER
     Dosage: 170 MG DURING 2 HOURS ON 11-FEB-2014 TO 25-FEB-2014 IN A CYCLE THEN 135 MG ON 15-MAR-2014 TO 25-MAR-
     Route: 042
     Dates: start: 20140211, end: 20140325

REACTIONS (2)
  - Chills [Recovered/Resolved]
  - Pyrexia [Recovered/Resolved]
